FAERS Safety Report 7499002-0 (Version None)
Quarter: 2011Q2

REPORT INFORMATION
  Report Type: 
  Country: None (occurrence: None)
  Receive Date: 20110524
  Receipt Date: 20110426
  Transmission Date: 20111010
  Serious: Yes (Other)
  Sender: FDA-Public Use
  Company Number: US-BAYER-201023607NA

PATIENT
  Age: 28 Year
  Sex: Female

DRUGS (8)
  1. YASMIN [Suspect]
     Indication: CONTRACEPTION
     Dosage: UNK
     Route: 048
     Dates: start: 20051001, end: 20080701
  2. YASMIN [Suspect]
     Dosage: UNK
     Dates: start: 20051001, end: 20070101
  3. PROZAC [Concomitant]
     Route: 048
  4. YASMIN [Suspect]
     Dosage: UNK
     Dates: start: 20080129, end: 20080502
  5. YASMIN [Suspect]
     Dosage: UNK
     Dates: start: 20080101, end: 20080701
  6. PHENERGAN HCL [Suspect]
     Route: 048
  7. PRENATAL VITAMINS [Concomitant]
     Route: 048
  8. YASMIN [Suspect]
     Dosage: UNK
     Dates: start: 20051025, end: 20070107

REACTIONS (9)
  - GALLBLADDER DISORDER [None]
  - GENERAL PHYSICAL CONDITION ABNORMAL [None]
  - BILIARY COLIC [None]
  - PAIN [None]
  - DYSPEPSIA [None]
  - MEDICAL DIET [None]
  - INJURY [None]
  - ANXIETY [None]
  - EMOTIONAL DISTRESS [None]
